FAERS Safety Report 14830277 (Version 1)
Quarter: 2018Q2

REPORT INFORMATION
  Report Type: Spontaneous
  Country: US (occurrence: US)
  Receive Date: 20180430
  Receipt Date: 20180430
  Transmission Date: 20180711
  Serious: No
  Sender: FDA-Public Use
  Company Number: US-TEIKOKU PHARMA USA-TPU2018-00266

PATIENT
  Sex: Female

DRUGS (1)
  1. LIDOCAINE PATCH [Suspect]
     Active Substance: LIDOCAINE
     Indication: BURSITIS
     Dosage: APPLY ON HIP FOR 12 HOURS, THEN AGAIN AT NIGHT FOR 12 HOURS
     Route: 061
     Dates: start: 2018

REACTIONS (1)
  - Inappropriate schedule of drug administration [Unknown]
